FAERS Safety Report 9934421 (Version 3)
Quarter: 2014Q1

REPORT INFORMATION
  Report Type: Spontaneous
  Country: CA (occurrence: CA)
  Receive Date: 20140228
  Receipt Date: 20140305
  Transmission Date: 20141002
  Serious: Yes (Death, Hospitalization)
  Sender: FDA-Public Use
  Company Number: CA-US-EMD SERONO, INC.-230012M09CAN

PATIENT
  Sex: Female
  Weight: 41 kg

DRUGS (2)
  1. REBIF [Suspect]
     Indication: RELAPSING-REMITTING MULTIPLE SCLEROSIS
     Route: 058
     Dates: start: 200710, end: 20090114
  2. EFFEXOR-XR [Suspect]
     Indication: DEPRESSION
     Route: 048
     Dates: start: 200811

REACTIONS (11)
  - Acute respiratory distress syndrome [Fatal]
  - Generalised oedema [Fatal]
  - Multiple sclerosis [Fatal]
  - Pneumonia [Fatal]
  - Renal failure acute [Fatal]
  - Shock haemorrhagic [Fatal]
  - Vasogenic cerebral oedema [Recovering/Resolving]
  - Cerebral atrophy [Recovering/Resolving]
  - Pleural effusion [Unknown]
  - Haemolytic uraemic syndrome [Recovering/Resolving]
  - Thrombocytopenic purpura [Fatal]
